FAERS Safety Report 9981280 (Version 4)
Quarter: 2014Q4

REPORT INFORMATION
  Report Type: Spontaneous
  Country: JP (occurrence: JP)
  Receive Date: 20140307
  Receipt Date: 20141104
  Transmission Date: 20150529
  Serious: Yes (Other)
  Sender: FDA-Public Use
  Company Number: JP-BEH-2014040892

PATIENT
  Age: 22 Year
  Sex: Female
  Weight: 60 kg

DRUGS (4)
  1. SANGLOPOR [Suspect]
     Active Substance: HUMAN IMMUNOGLOBULIN G
     Indication: IMMUNE THROMBOCYTOPENIC PURPURA
     Dosage: 9 VIALS
     Route: 042
     Dates: start: 20140218, end: 20140218
  2. SANGLOPOR [Suspect]
     Active Substance: HUMAN IMMUNOGLOBULIN G
     Dosage: 4 VIALS
     Route: 042
     Dates: start: 20140219, end: 20140219
  3. SANGLOPOR [Suspect]
     Active Substance: HUMAN IMMUNOGLOBULIN G
     Dosage: 9 VIALS
     Route: 042
     Dates: start: 20140220, end: 20140220
  4. SANGLOPOR [Suspect]
     Active Substance: HUMAN IMMUNOGLOBULIN G
     Dosage: 5 VIALS
     Route: 042
     Dates: start: 20140219, end: 20140219

REACTIONS (9)
  - Nuchal rigidity [Recovered/Resolved]
  - Exposure during pregnancy [Recovered/Resolved]
  - Meningitis aseptic [Recovered/Resolved]
  - Malaise [Recovered/Resolved]
  - Nausea [Recovered/Resolved]
  - Headache [Recovered/Resolved]
  - Pyrexia [Recovered/Resolved]
  - Vomiting [Recovered/Resolved]
  - Nausea [Recovered/Resolved]

NARRATIVE: CASE EVENT DATE: 201402
